FAERS Safety Report 9015237 (Version 1)
Quarter: 2013Q1

REPORT INFORMATION
  Report Type: Spontaneous
  Country: US (occurrence: None)
  Receive Date: 20130109
  Receipt Date: 20130109
  Transmission Date: 20140127
  Serious: No
  Sender: FDA-Public Use
  Company Number: None

PATIENT
  Age: 66 Year
  Sex: Male
  Weight: 72.58 kg

DRUGS (1)
  1. VIAGRA 100 MG PFIZER [Suspect]
     Indication: ERECTILE DYSFUNCTION
     Dosage: 50 MG 1X PRN PO
     Route: 048
     Dates: start: 20121215, end: 20121215

REACTIONS (4)
  - Dizziness [None]
  - Cyanopsia [None]
  - Dizziness [None]
  - Wrong technique in drug usage process [None]
